FAERS Safety Report 4339809-1 (Version None)
Quarter: 2004Q2

REPORT INFORMATION
  Report Type: 
  Country: None (occurrence: None)
  Receive Date: 20040414
  Receipt Date: 20040414
  Transmission Date: 20050107
  Serious: Yes (Hospitalization)
  Sender: FDA-Public Use
  Company Number: None

PATIENT
  Sex: Male
  Weight: 8.2 kg

DRUGS (3)
  1. DEXAMETHASONE [Suspect]
     Indication: BRONCHIOLITIS
     Dosage: 8 ML PO ONE
     Route: 048
     Dates: start: 20040218
  2. DEXAMETHASONE [Suspect]
     Indication: RESPIRATORY SYNCYTIAL VIRUS INFECTION
     Dosage: 8 ML PO ONE
     Route: 048
     Dates: start: 20040218
  3. PLACEBO [Suspect]

REACTIONS (3)
  - EMPYEMA [None]
  - IRRITABILITY [None]
  - PNEUMONIA [None]
